FAERS Safety Report 7277385-4 (Version None)
Quarter: 2011Q1

REPORT INFORMATION
  Report Type: 
  Country: None (occurrence: None)
  Receive Date: 20110207
  Receipt Date: 20110131
  Transmission Date: 20110831
  Serious: Yes (Other)
  Sender: FDA-Public Use
  Company Number: CH-US-EMD SERONO, INC.-7038017

PATIENT
  Sex: Female

DRUGS (6)
  1. SIRDALUD [Concomitant]
     Indication: BACK PAIN
     Route: 048
  2. LYRICA [Concomitant]
     Route: 048
  3. REBIF [Suspect]
     Indication: MULTIPLE SCLEROSIS
     Route: 058
     Dates: start: 20071202
  4. XANAX [Concomitant]
  5. CITALOPRAM HYDROBROMIDE [Concomitant]
     Route: 048
  6. PLATINIUM DROPS [Concomitant]
     Indication: UTERINE LEIOMYOMA
     Route: 048

REACTIONS (12)
  - IRON DEFICIENCY [None]
  - HYPOTENSION [None]
  - NAUSEA [None]
  - DECREASED APPETITE [None]
  - ABDOMINAL PAIN UPPER [None]
  - SLEEP DISORDER [None]
  - GAIT DISTURBANCE [None]
  - BACK DISORDER [None]
  - VOMITING [None]
  - ASTHENIA [None]
  - UTERINE LEIOMYOMA [None]
  - VERTIGO [None]
